FAERS Safety Report 8973927 (Version 1)
Quarter: 2012Q4

REPORT INFORMATION
  Report Type: 
  Country: DE (occurrence: DE)
  Receive Date: 20121218
  Receipt Date: 20121218
  Transmission Date: 20130627
  Serious: Yes (Hospitalization)
  Sender: FDA-Public Use
  Company Number: DE-GLAXOSMITHKLINE-D0078150A

PATIENT
  Age: 49 Year
  Sex: Male

DRUGS (4)
  1. REQUIP [Suspect]
     Indication: PARKINSON^S DISEASE
     Dosage: 4MG per day
     Route: 048
     Dates: start: 2012
  2. PIRIBEDIL [Suspect]
     Indication: PARKINSON^S DISEASE
     Dosage: 250MG per day
     Route: 065
  3. NEUPRO [Suspect]
     Route: 065
  4. PK-MERZ [Suspect]
     Route: 065

REACTIONS (3)
  - Parkinsonism [Unknown]
  - Fear [Unknown]
  - Therapeutic response decreased [Unknown]
